FAERS Safety Report 10479922 (Version 2)
Quarter: 2014Q4

REPORT INFORMATION
  Report Type: Spontaneous
  Country: CN (occurrence: CN)
  Receive Date: 20140929
  Receipt Date: 20141002
  Transmission Date: 20150528
  Serious: Yes (Life-Threatening, Hospitalization)
  Sender: FDA-Public Use
  Company Number: CN-ROCHE-1466616

PATIENT
  Age: 71 Year
  Sex: Male
  Weight: 90 kg

DRUGS (6)
  1. EDARAVONE [Concomitant]
     Active Substance: EDARAVONE
     Indication: CEREBRAL INFARCTION
     Route: 042
     Dates: start: 20140906, end: 20140912
  2. MONOSIALOTETRAHEXOSYLGANGLIOSIDE SODIUM [Concomitant]
     Indication: PARKINSON^S DISEASE
     Route: 065
     Dates: start: 20140912, end: 20140912
  3. ASPIRIN. [Concomitant]
     Active Substance: ASPIRIN
     Indication: CORONARY ARTERY DISEASE
     Route: 048
     Dates: start: 20140906, end: 20140912
  4. DEPROTEINISED CALF BLOOD INJECTION [Concomitant]
     Indication: CEREBRAL INFARCTION
     Route: 042
     Dates: start: 20140906, end: 20140912
  5. AMLODIPINE BESYLATE. [Concomitant]
     Active Substance: AMLODIPINE BESYLATE
     Indication: HYPERTENSION
     Route: 065
  6. ACTILYSE [Suspect]
     Active Substance: ALTEPLASE
     Indication: CEREBRAL INFARCTION
     Dosage: } 70 MCG,
     Route: 042
     Dates: start: 20140912, end: 20140912

REACTIONS (3)
  - Hemiplegia [Not Recovered/Not Resolved]
  - Cerebral disorder [Not Recovered/Not Resolved]
  - Cerebral infarction [Not Recovered/Not Resolved]

NARRATIVE: CASE EVENT DATE: 20140912
